FAERS Safety Report 7324639-9 (Version None)
Quarter: 2011Q1

REPORT INFORMATION
  Report Type: 
  Country: None (occurrence: None)
  Receive Date: 20110218
  Receipt Date: 20110203
  Transmission Date: 20110831
  Serious: Yes (Other)
  Sender: FDA-Public Use
  Company Number: AUR-APL-2011-00304

PATIENT
  Age: 54 Year
  Sex: Female
  Weight: 81.6475 kg

DRUGS (4)
  1. MULTI-VITAMINS [Concomitant]
  2. FISH OIL [Concomitant]
  3. CEFUROXIME AXETIL [Suspect]
     Dosage: 500 MG -BID -ORAL
     Route: 048
     Dates: start: 20110110, end: 20110119
  4. CALCIUM [Concomitant]

REACTIONS (5)
  - CHOKING [None]
  - PRODUCT QUALITY ISSUE [None]
  - PRODUCT SOLUBILITY ABNORMAL [None]
  - RETCHING [None]
  - PRODUCT TASTE ABNORMAL [None]
